FAERS Safety Report 5772888-3 (Version None)
Quarter: 2008Q2

REPORT INFORMATION
  Report Type: 
  Country: None (occurrence: None)
  Receive Date: 20080613
  Receipt Date: 20080603
  Transmission Date: 20081010
  Serious: Yes (Hospitalization, Other)
  Sender: FDA-Public Use
  Company Number: CA-PFIZER INC-2008042628

PATIENT
  Sex: Female
  Weight: 70.5 kg

DRUGS (9)
  1. SILDENAFIL CITRATE [Suspect]
     Indication: PULMONARY HYPERTENSION
     Route: 048
  2. LEVOTHYROXINE SODIUM [Concomitant]
     Route: 048
  3. CLONAZEPAM [Concomitant]
     Route: 048
  4. RALOXIFENE HYDROCHLORIDE [Concomitant]
     Route: 048
  5. PANTOPRAZOLE [Concomitant]
     Route: 048
  6. HYDROCORTISONE [Concomitant]
  7. POLYSPORIN OINTMENT [Concomitant]
  8. TYLENOL [Concomitant]
  9. SITAXENTAN [Concomitant]
     Route: 048

REACTIONS (2)
  - APPENDICITIS [None]
  - SURGERY [None]
